FAERS Safety Report 6423449-4 (Version None)
Quarter: 2009Q4

REPORT INFORMATION
  Report Type: 
  Country: None (occurrence: None)
  Receive Date: 20091102
  Receipt Date: 20091022
  Transmission Date: 20100525
  Serious: Yes (Hospitalization)
  Sender: FDA-Public Use
  Company Number: B0598940A

PATIENT
  Sex: Female

DRUGS (13)
  1. CIFLOX [Suspect]
     Indication: DRUG USE FOR UNKNOWN INDICATION
     Route: 048
     Dates: start: 20090424, end: 20090429
  2. FORTUM [Suspect]
     Indication: DRUG USE FOR UNKNOWN INDICATION
     Route: 048
     Dates: start: 20090424, end: 20090501
  3. BACTRIM DS [Suspect]
     Indication: DRUG USE FOR UNKNOWN INDICATION
     Route: 065
     Dates: start: 20090321, end: 20090724
  4. ADRIAMYCIN PFS [Suspect]
     Indication: DIFFUSE LARGE B-CELL LYMPHOMA
     Dosage: 90MG AS REQUIRED
     Route: 042
     Dates: start: 20090321, end: 20090716
  5. ENDOXAN [Suspect]
     Indication: DIFFUSE LARGE B-CELL LYMPHOMA
     Dosage: 1.3G AS REQUIRED
     Route: 042
     Dates: start: 20090321, end: 20090716
  6. SOLU-MEDROL [Suspect]
     Indication: DIFFUSE LARGE B-CELL LYMPHOMA
     Dosage: 100MG AS REQUIRED
     Route: 042
     Dates: start: 20090321, end: 20090716
  7. ONCOVIN [Suspect]
     Indication: DIFFUSE LARGE B-CELL LYMPHOMA
     Route: 042
     Dates: start: 20090321, end: 20090716
  8. MABTHERA [Suspect]
     Indication: DIFFUSE LARGE B-CELL LYMPHOMA
     Dosage: 600MG AS REQUIRED
     Route: 042
     Dates: start: 20090323, end: 20090716
  9. ORELOX [Suspect]
     Route: 065
  10. ZELITREX [Concomitant]
     Route: 065
  11. RIMIFON [Concomitant]
     Route: 065
  12. SPECIAFOLDINE [Concomitant]
     Route: 065
  13. NEXIUM [Concomitant]
     Route: 065

REACTIONS (2)
  - CLOSTRIDIAL INFECTION [None]
  - DIARRHOEA [None]
